FAERS Safety Report 6928374-8 (Version None)
Quarter: 2010Q3

REPORT INFORMATION
  Report Type: 
  Country: None (occurrence: None)
  Receive Date: 20100812
  Receipt Date: 20100806
  Transmission Date: 20110219
  Serious: Yes (Other)
  Sender: FDA-Public Use
  Company Number: 016814

PATIENT
  Age: 32 Year
  Sex: Male
  Weight: 75 kg

DRUGS (3)
  1. KEPPRA [Suspect]
     Indication: EPILEPSY
     Dosage: 1000 MG BID
     Dates: start: 20060101
  2. LAMICTAL [Suspect]
     Dosage: 400 MG BID
     Dates: start: 20040101
  3. EPILAN [Concomitant]

REACTIONS (2)
  - DEVICE DISLOCATION [None]
  - OSTEONECROSIS [None]
